FAERS Safety Report 11389753 (Version 4)
Quarter: 2015Q4

REPORT INFORMATION
  Report Type: Spontaneous
  Country: JP (occurrence: JP)
  Receive Date: 20150817
  Receipt Date: 20151115
  Transmission Date: 20160304
  Serious: Yes (Hospitalization, Other)
  Sender: FDA-Public Use
  Company Number: PHJP2015JP013696

PATIENT
  Age: 18 Year
  Sex: Male

DRUGS (3)
  1. TEGRETOL [Suspect]
     Active Substance: CARBAMAZEPINE
     Indication: EPILEPSY
     Dosage: 100 MG, QD
     Route: 048
     Dates: start: 20040409, end: 20150727
  2. TEGRETOL [Suspect]
     Active Substance: CARBAMAZEPINE
     Dosage: APPROXIMATELY 43000 MG
     Route: 048
     Dates: start: 20150727
  3. TEGRETOL [Suspect]
     Active Substance: CARBAMAZEPINE
     Dosage: 100 MG, QD
     Route: 048

REACTIONS (6)
  - Overdose [Unknown]
  - Embolism [Recovering/Resolving]
  - Suicide attempt [Recovering/Resolving]
  - Inflammation [Unknown]
  - Vomiting [Unknown]
  - Depression [Recovering/Resolving]

NARRATIVE: CASE EVENT DATE: 201507
